FAERS Safety Report 9164771 (Version 4)
Quarter: 2013Q4

REPORT INFORMATION
  Report Type: Spontaneous
  Country: US (occurrence: US)
  Receive Date: 20130315
  Receipt Date: 20131101
  Transmission Date: 20140711
  Serious: Yes (Hospitalization, Other)
  Sender: FDA-Public Use
  Company Number: US-PFIZER INC-2013084691

PATIENT
  Age: 84 Year
  Sex: Male
  Weight: 83.9 kg

DRUGS (10)
  1. SUTENT [Suspect]
     Indication: RENAL CELL CARCINOMA
     Dosage: 50 MG, 1X/DAY (28 DAYS ON AND 14 OFF, TOOK FOR A YEAR)
     Dates: start: 20120305, end: 20130311
  2. SUTENT [Suspect]
     Dosage: 50 MG, 1X/DAY
     Route: 048
     Dates: start: 201206, end: 201303
  3. ZOCOR [Concomitant]
     Dosage: UNK
  4. LASIX [Concomitant]
     Dosage: UNK
  5. WARFARIN SODIUM [Concomitant]
     Dosage: UNK
  6. METOPROLOL [Concomitant]
     Dosage: UNK
  7. GABAPENTIN [Concomitant]
     Dosage: UNK
  8. VITAMIN D [Concomitant]
     Dosage: UNK
  9. FLOMAX [Concomitant]
     Dosage: UNK
  10. PROCRIT [Concomitant]
     Dosage: UNK

REACTIONS (14)
  - Fall [Unknown]
  - Joint injury [Unknown]
  - Gait disturbance [Not Recovered/Not Resolved]
  - Joint fluid drainage [Unknown]
  - Skin hypertrophy [Recovering/Resolving]
  - Skin exfoliation [Recovering/Resolving]
  - Pain in extremity [Unknown]
  - Local swelling [Unknown]
  - Joint swelling [Recovered/Resolved]
  - Impaired healing [Recovering/Resolving]
  - Hair colour changes [Unknown]
  - Diarrhoea [Unknown]
  - Asthenia [Unknown]
  - Fatigue [Unknown]
